FAERS Safety Report 7719019-8 (Version None)
Quarter: 2011Q3

REPORT INFORMATION
  Report Type: 
  Country: None (occurrence: None)
  Receive Date: 20110830
  Receipt Date: 20110822
  Transmission Date: 20111222
  Serious: Yes (Other)
  Sender: FDA-Public Use
  Company Number: CN-GLAXOSMITHKLINE-B0743142A

PATIENT
  Age: 59 Year
  Sex: Female

DRUGS (1)
  1. CEFUROXIME SODIUM [Suspect]
     Indication: UPPER RESPIRATORY TRACT INFECTION
     Route: 042
     Dates: start: 20101207, end: 20101207

REACTIONS (1)
  - ANAPHYLACTIC SHOCK [None]
